FAERS Safety Report 10049600 (Version 2)
Quarter: 2014Q2

REPORT INFORMATION
  Report Type: Spontaneous
  Country: JP (occurrence: JP)
  Receive Date: 20140401
  Receipt Date: 20140512
  Transmission Date: 20141212
  Serious: Yes (Hospitalization)
  Sender: FDA-Public Use
  Company Number: PHJP2014JP000664

PATIENT
  Sex: Male

DRUGS (1)
  1. RITALIN TAB 10MG [Suspect]
     Indication: HYPERSOMNIA
     Dosage: 6 DF, (60 MG) DAILY, IN 2 DOSES PER DAY, ONCE IN THE MORNING AND ONCE IN THE DAY TIME
     Route: 048
     Dates: end: 20140326

REACTIONS (3)
  - Vertebral artery dissection [Unknown]
  - Altered state of consciousness [Unknown]
  - Hypersomnia [Unknown]
